FAERS Safety Report 16154064 (Version 3)
Quarter: 2019Q2

REPORT INFORMATION
  Report Type: Spontaneous
  Country: US (occurrence: US)
  Receive Date: 20190403
  Receipt Date: 20190417
  Transmission Date: 20190711
  Serious: No
  Sender: FDA-Public Use
  Company Number: US-GILEAD-2019-0399671

PATIENT
  Age: 62 Year
  Sex: Female

DRUGS (4)
  1. B COMPLEX [VITAMIN B COMPLEX] [Concomitant]
  2. VITAMIN D3 [Concomitant]
     Active Substance: CHOLECALCIFEROL
  3. VOSEVI [Suspect]
     Active Substance: SOFOSBUVIR\VELPATASVIR\VOXILAPREVIR
     Indication: CHRONIC HEPATITIS C
     Dosage: UNK
     Route: 065
     Dates: start: 201903
  4. MULTIVITAMIN FOR WOMEN [Concomitant]

REACTIONS (11)
  - Flatulence [Recovered/Resolved]
  - Abdominal pain upper [Not Recovered/Not Resolved]
  - Hair texture abnormal [Recovered/Resolved]
  - Dry eye [Recovering/Resolving]
  - Trichorrhexis [Recovered/Resolved]
  - Alopecia [Not Recovered/Not Resolved]
  - Muscular weakness [Recovered/Resolved]
  - Dry throat [Recovering/Resolving]
  - Abdominal distension [Not Recovered/Not Resolved]
  - Migraine [Recovered/Resolved]
  - Fatigue [Not Recovered/Not Resolved]

NARRATIVE: CASE EVENT DATE: 201903
